FAERS Safety Report 10443861 (Version 1)
Quarter: 2014Q3

REPORT INFORMATION
  Report Type: Spontaneous
  Country: PL (occurrence: PL)
  Receive Date: 20140910
  Receipt Date: 20140910
  Transmission Date: 20150326
  Serious: Yes (Other)
  Sender: FDA-Public Use
  Company Number: PHHY2014PL109876

PATIENT
  Age: 34 Year
  Sex: Female

DRUGS (2)
  1. FLONIDAN [Suspect]
     Active Substance: LORATADINE
     Dosage: 10 MG, UNK
  2. FLONIDAN [Suspect]
     Active Substance: LORATADINE
     Dosage: 10 UNK, UNK

REACTIONS (7)
  - Somnolence [Recovered/Resolved]
  - Rash [Recovered/Resolved]
  - Myalgia [Recovered/Resolved]
  - Headache [Recovered/Resolved]
  - Fatigue [Recovered/Resolved]
  - Increased appetite [Recovered/Resolved]
  - Dizziness [Recovered/Resolved]
